FAERS Safety Report 6245889-9 (Version None)
Quarter: 2009Q2

REPORT INFORMATION
  Report Type: 
  Country: None (occurrence: None)
  Receive Date: 20090626
  Receipt Date: 20090619
  Transmission Date: 20091009
  Serious: Yes (Other)
  Sender: FDA-Public Use
  Company Number: BR-JNJFOC-20090607431

PATIENT
  Age: 27 Year
  Sex: Female
  Weight: 69 kg

DRUGS (4)
  1. TYLEX [Suspect]
     Indication: BONE PAIN
     Route: 065
  2. MIOFLEX (BRAZIL) [Suspect]
     Indication: BONE PAIN
  3. CLONAZEPAM [Concomitant]
     Indication: SLEEP DISORDER
  4. SERTRALINE [Concomitant]

REACTIONS (5)
  - ASTHENIA [None]
  - HYPERHIDROSIS [None]
  - SYNCOPE [None]
  - VISUAL ACUITY REDUCED [None]
  - VOMITING [None]
